FAERS Safety Report 25690835 (Version 1)
Quarter: 2025Q3

REPORT INFORMATION
  Report Type: Spontaneous
  Country: US (occurrence: US)
  Receive Date: 20250818
  Receipt Date: 20250818
  Transmission Date: 20251020
  Serious: No
  Sender: TORRENT PHARMA INC.
  Company Number: US-TORRENT-00014472

PATIENT
  Age: 62 Year
  Sex: Female

DRUGS (1)
  1. DICHLORPHENAMIDE [Suspect]
     Active Substance: DICHLORPHENAMIDE
     Indication: Paralysis
     Dosage: 50 MG, 1X/DAY
     Route: 065
     Dates: start: 20250709

REACTIONS (7)
  - Bacterial infection [Unknown]
  - Bacterial vaginosis [Unknown]
  - Cystitis [Unknown]
  - Hormone level abnormal [Unknown]
  - Aphasia [Unknown]
  - Muscular weakness [Unknown]
  - Arthralgia [Unknown]

NARRATIVE: CASE EVENT DATE: 20250701
